FAERS Safety Report 25901587 (Version 1)
Quarter: 2025Q4

REPORT INFORMATION
  Report Type: Spontaneous
  Country: US (occurrence: US)
  Receive Date: 20251009
  Receipt Date: 20251009
  Transmission Date: 20260117
  Serious: No
  Sender: SANOFI AVENTIS
  Company Number: US-SA-2025SA296063

PATIENT
  Age: 31 Year
  Sex: Female

DRUGS (10)
  1. DUPIXENT [Suspect]
     Active Substance: DUPILUMAB
     Indication: Depression
     Dosage: 300 MG, QOW
     Route: 058
     Dates: start: 20250619
  2. ATORVASTATIN [Concomitant]
     Active Substance: ATORVASTATIN
  3. DOXEPIN [Concomitant]
     Active Substance: DOXEPIN
  4. DULERA [Concomitant]
     Active Substance: FORMOTEROL FUMARATE DIHYDRATE\MOMETASONE FUROATE
  5. HYDROXYZINE HYDROCHLORIDE [Concomitant]
     Active Substance: HYDROXYZINE HYDROCHLORIDE
  6. HYOSCYAMINE [Concomitant]
     Active Substance: HYOSCYAMINE
  7. LURASIDONE [Concomitant]
     Active Substance: LURASIDONE
  8. MECLIZINE [Concomitant]
     Active Substance: MECLIZINE HYDROCHLORIDE
  9. DIAZEPAM [Concomitant]
     Active Substance: DIAZEPAM
  10. CLONIDINE [Concomitant]
     Active Substance: CLONIDINE

REACTIONS (2)
  - Asthma [Unknown]
  - Product use in unapproved indication [Unknown]

NARRATIVE: CASE EVENT DATE: 20250101
